FAERS Safety Report 9058883 (Version 1)
Quarter: 2013Q1

REPORT INFORMATION
  Report Type: Spontaneous
  Country: MX (occurrence: MX)
  Receive Date: 20130211
  Receipt Date: 20130211
  Transmission Date: 20140127
  Serious: Yes (Life-Threatening, Other)
  Sender: FDA-Public Use
  Company Number: PHHY2013MX012757

PATIENT
  Age: 19 Year
  Sex: Female

DRUGS (3)
  1. GILENYA [Suspect]
     Indication: RELAPSING-REMITTING MULTIPLE SCLEROSIS
     Dosage: 0.5 MG, UNK
     Route: 048
  2. GILENYA [Suspect]
     Dosage: 6 DF, UNK
     Route: 048
  3. GILENYA [Suspect]
     Dosage: 0.5 MG, UNK
     Route: 048

REACTIONS (3)
  - Suicide attempt [Unknown]
  - Depression [Not Recovered/Not Resolved]
  - Intentional overdose [Unknown]
